FAERS Safety Report 4268563-7 (Version None)
Quarter: 2004Q1

REPORT INFORMATION
  Report Type: 
  Country: None (occurrence: None)
  Receive Date: 20040112
  Receipt Date: 20040105
  Transmission Date: 20041129
  Serious: Yes (Death, Other)
  Sender: FDA-Public Use
  Company Number: PHBS2004FI00505

PATIENT
  Age: 52 Year
  Sex: Male

DRUGS (3)
  1. CYCLOSPORINE [Suspect]
     Indication: RENAL TRANSPLANT
     Dosage: 100 MG, BID
     Route: 065
     Dates: start: 19920101
  2. AZATHIOPRINE [Concomitant]
     Indication: RENAL TRANSPLANT
     Dosage: 75 MG/D
     Route: 065
     Dates: start: 19920101
  3. METHYLPREDNISOLONE [Concomitant]
     Indication: RENAL TRANSPLANT
     Dosage: 4 MG/D
     Route: 065
     Dates: start: 19920101

REACTIONS (6)
  - ASPARTATE AMINOTRANSFERASE INCREASED [None]
  - ASPERGILLOSIS [None]
  - BLOOD CREATININE INCREASED [None]
  - BLOOD UREA INCREASED [None]
  - CARDIAC FAILURE CONGESTIVE [None]
  - MYOCARDIAL INFARCTION [None]
